FAERS Safety Report 25402091 (Version 3)
Quarter: 2025Q4

REPORT INFORMATION
  Report Type: Spontaneous
  Country: US (occurrence: US)
  Receive Date: 20250605
  Receipt Date: 20251031
  Transmission Date: 20260117
  Serious: No
  Sender: IPSEN
  Company Number: US-IPSEN Group, Research and Development-2025-12570

PATIENT
  Age: 59 Year
  Sex: Female
  Weight: 70.48 kg

DRUGS (30)
  1. IQIRVO [Suspect]
     Active Substance: ELAFIBRANOR
     Indication: Primary biliary cholangitis
     Route: 048
     Dates: start: 20250218, end: 20250524
  2. IQIRVO [Suspect]
     Active Substance: ELAFIBRANOR
     Route: 048
     Dates: start: 20250310, end: 202510
  3. TYLENOL [Concomitant]
     Active Substance: ACETAMINOPHEN
  4. AIMOVIG [Concomitant]
     Active Substance: ERENUMAB-AOOE
     Dosage: 140 MG/ML, INJECTION Q MONTH
  5. AMOXICILLIN [Concomitant]
     Active Substance: AMOXICILLIN
  6. BUSPIRONE [Concomitant]
     Active Substance: BUSPIRONE HYDROCHLORIDE
  7. ESOMEPRAZOLE [Concomitant]
     Active Substance: ESOMEPRAZOLE
     Route: 048
  8. HYDROCHLOROTHIAZIDE [Concomitant]
     Active Substance: HYDROCHLOROTHIAZIDE
  9. LISINOPRIL [Concomitant]
     Active Substance: LISINOPRIL
     Route: 048
  10. NORTRIPTYLINE [Concomitant]
     Active Substance: NORTRIPTYLINE
     Dosage: 2 CAPSULES DAILY
     Route: 048
  11. POTASSIUM CHLORIDE [Concomitant]
     Active Substance: POTASSIUM CHLORIDE
     Dosage: ER 3 TABS PO DAILY,
     Route: 048
  12. RIZATRIPTAN [Concomitant]
     Active Substance: RIZATRIPTAN
  13. SCOPOLAMINE [Concomitant]
     Active Substance: SCOPOLAMINE
     Dosage: PATCHES
  14. TIZANIDINE [Concomitant]
     Active Substance: TIZANIDINE
     Dosage: 1 TAB PO TID
     Route: 048
  15. TOPIRAMATE [Concomitant]
     Active Substance: TOPIRAMATE
     Route: 048
  16. TOPIRAMATE [Concomitant]
     Active Substance: TOPIRAMATE
     Dosage: Q AM
     Route: 048
  17. TOPIRAMATE [Concomitant]
     Active Substance: TOPIRAMATE
     Route: 048
  18. TOPIRAMATE [Concomitant]
     Active Substance: TOPIRAMATE
     Dosage: 225 MG PO Q,/HS
     Route: 048
  19. URSODIOL [Concomitant]
     Active Substance: URSODIOL
     Dosage: TID
     Route: 048
  20. VENLAFAXINE HYDROCHLORIDE [Concomitant]
     Active Substance: VENLAFAXINE HYDROCHLORIDE
     Dosage: ER
     Route: 048
  21. ACETAMINOPHEN AND CODEINE [Concomitant]
     Active Substance: ACETAMINOPHEN\CODEINE PHOSPHATE
     Dosage: 300-30 MG 1-2 TABS PO PRN
     Route: 048
  22. ACIDOPHILUS [Concomitant]
     Active Substance: LACTOBACILLUS ACIDOPHILUS
     Route: 048
  23. BUSPIRONE [Concomitant]
     Active Substance: BUSPIRONE HYDROCHLORIDE
     Route: 048
  24. COENZYME Q10 [Concomitant]
     Active Substance: DIETARY SUPPLEMENT\UBIDECARENONE
     Route: 048
  25. FISH OIL [Concomitant]
     Active Substance: FISH OIL
     Dosage: 300-1,000 MG 1 TAB PO BID
     Route: 048
  26. FISH OIL [Concomitant]
     Active Substance: FISH OIL
     Route: 048
  27. LEVOTHYROXINE [Concomitant]
     Active Substance: LEVOTHYROXINE
     Dosage: 125 MCG TAKE 1 TAB PO ONCE DAILY
     Route: 048
  28. MAXALT [Concomitant]
     Active Substance: RIZATRIPTAN BENZOATE
     Dosage: PRN
     Route: 048
  29. OCALIVA [Concomitant]
     Active Substance: OBETICHOLIC ACID
  30. MAGNESIUM [Concomitant]
     Active Substance: MAGNESIUM

REACTIONS (2)
  - Vomiting [Recovered/Resolved]
  - Nausea [Recovered/Resolved]

NARRATIVE: CASE EVENT DATE: 20250510
